FAERS Safety Report 18538642 (Version 6)
Quarter: 2022Q1

REPORT INFORMATION
  Report Type: Report from Study
  Country: US (occurrence: US)
  Receive Date: 20201124
  Receipt Date: 20220112
  Transmission Date: 20220424
  Serious: Yes (Other)
  Sender: FDA-Public Use
  Company Number: NVSC2020US310131

PATIENT
  Age: 59 Year
  Sex: Male
  Weight: 80 kg

DRUGS (2)
  1. GILENYA [Suspect]
     Active Substance: FINGOLIMOD HYDROCHLORIDE
     Indication: Multiple sclerosis
     Dosage: 1 DOSAGE FORM, QD
     Route: 048
     Dates: start: 20101030, end: 20201007
  2. GILENYA [Suspect]
     Active Substance: FINGOLIMOD HYDROCHLORIDE
     Dosage: 1 DOSAGE FORM
     Route: 048
     Dates: start: 20201007

REACTIONS (6)
  - Macular oedema [Recovered/Resolved]
  - Vitreous floaters [Unknown]
  - Vision blurred [Unknown]
  - Squamous cell carcinoma [Recovered/Resolved]
  - Relapsing-remitting multiple sclerosis [Unknown]
  - Visual impairment [Recovered/Resolved]

NARRATIVE: CASE EVENT DATE: 20200720
